FAERS Safety Report 17196635 (Version 2)
Quarter: 2020Q1

REPORT INFORMATION
  Report Type: Spontaneous
  Country: GB (occurrence: GB)
  Receive Date: 20191224
  Receipt Date: 20200224
  Transmission Date: 20200409
  Serious: Yes (Other)
  Sender: FDA-Public Use
  Company Number: GB-PFIZER INC-2019053400

PATIENT
  Age: 26 Year
  Sex: Female

DRUGS (13)
  1. OMEPRAZOLE. [Suspect]
     Active Substance: OMEPRAZOLE
     Dosage: 20 MG, UNK
     Route: 065
  2. METHYLPREDNISOLONE. [Concomitant]
     Active Substance: METHYLPREDNISOLONE
     Dosage: 1 G, UNK
     Route: 042
  3. PARACETAMOL [Suspect]
     Active Substance: ACETAMINOPHEN
     Dosage: 1 G, UNK
     Route: 065
  4. METHYLPREDNISOLONE. [Suspect]
     Active Substance: METHYLPREDNISOLONE
     Dosage: 1 G, UNK
     Route: 042
  5. OMEPRAZOLE. [Concomitant]
     Active Substance: OMEPRAZOLE
     Dosage: 20 MG, UNK
  6. SULFAMETHOXAZOLE/TRIMETHOPRIM [Concomitant]
     Active Substance: SULFAMETHOXAZOLE\TRIMETHOPRIM
     Dosage: 480 MG, UNK
  7. COTRIMOXAZOLE [Suspect]
     Active Substance: SULFAMETHOXAZOLE\TRIMETHOPRIM
     Dosage: 480 MG, (THREE DAYS OF WEEK TWICE A DAY; MONDAY, WEDNESDAY AND FRIDAY)
     Route: 065
  8. PARACETAMOL [Concomitant]
     Active Substance: ACETAMINOPHEN
     Dosage: 1 G, UNK
  9. CHLORPHENAMINE [Suspect]
     Active Substance: CHLORPHENIRAMINE MALEATE
     Dosage: 4 MG, UNK
     Route: 048
  10. COTRIMOXAZOLE [Concomitant]
     Active Substance: SULFAMETHOXAZOLE\TRIMETHOPRIM
  11. ACICLOVIR [Suspect]
     Active Substance: ACYCLOVIR
     Dosage: 200 MG, UNK
     Route: 065
  12. LEMTRADA [Suspect]
     Active Substance: ALEMTUZUMAB
     Indication: MULTIPLE SCLEROSIS
     Dosage: 12 MG, UNK
     Route: 041
     Dates: start: 2018, end: 201901
  13. CHLORPHENAMINE [Concomitant]
     Active Substance: CHLORPHENIRAMINE MALEATE
     Dosage: 4 MG, UNK
     Route: 048

REACTIONS (8)
  - Fatigue [Unknown]
  - Rash [Recovered/Resolved]
  - Thyroid disorder [Unknown]
  - Pruritus [Recovered/Resolved]
  - Headache [Recovered/Resolved]
  - Chest discomfort [Recovered/Resolved]
  - Anaemia [Not Recovered/Not Resolved]
  - Basedow^s disease [Unknown]

NARRATIVE: CASE EVENT DATE: 20190107
